FAERS Safety Report 12739607 (Version 4)
Quarter: 2017Q3

REPORT INFORMATION
  Report Type: Spontaneous
  Country: FR (occurrence: FR)
  Receive Date: 20160913
  Receipt Date: 20170906
  Transmission Date: 20171127
  Serious: Yes (Hospitalization, Disabling)
  Sender: FDA-Public Use
  Company Number: FR-JNJFOC-20160703769

PATIENT
  Age: 18 Year
  Sex: Female
  Weight: 54 kg

DRUGS (9)
  1. XEPLION [Suspect]
     Active Substance: PALIPERIDONE PALMITATE
     Indication: PSYCHOTIC DISORDER
     Route: 030
     Dates: start: 20130404, end: 20150216
  2. RISPERDAL [Suspect]
     Active Substance: RISPERIDONE
     Indication: PRODUCT USED FOR UNKNOWN INDICATION
     Route: 065
     Dates: start: 20130202, end: 20130220
  3. RISPERDAL [Suspect]
     Active Substance: RISPERIDONE
     Indication: PRODUCT USED FOR UNKNOWN INDICATION
     Route: 065
     Dates: start: 20130301, end: 20130305
  4. RISPERDAL [Suspect]
     Active Substance: RISPERIDONE
     Indication: PRODUCT USED FOR UNKNOWN INDICATION
     Route: 065
     Dates: start: 20130220, end: 20130228
  5. XEPLION [Suspect]
     Active Substance: PALIPERIDONE PALMITATE
     Indication: SCHIZOPHRENIA
     Dosage: MAR-APR
     Route: 030
     Dates: start: 20130227, end: 20130227
  6. XEPLION [Suspect]
     Active Substance: PALIPERIDONE PALMITATE
     Indication: SCHIZOPHRENIA
     Route: 030
     Dates: start: 20130404, end: 20150216
  7. XEPLION [Suspect]
     Active Substance: PALIPERIDONE PALMITATE
     Indication: PSYCHOTIC DISORDER
     Route: 030
     Dates: start: 20130306, end: 20130306
  8. XEPLION [Suspect]
     Active Substance: PALIPERIDONE PALMITATE
     Indication: PSYCHOTIC DISORDER
     Dosage: MAR-APR
     Route: 030
     Dates: start: 20130227, end: 20130227
  9. XEPLION [Suspect]
     Active Substance: PALIPERIDONE PALMITATE
     Indication: SCHIZOPHRENIA
     Route: 030
     Dates: start: 20130306, end: 20130306

REACTIONS (23)
  - Tremor [Unknown]
  - Tardive dyskinesia [Recovering/Resolving]
  - Fatigue [Unknown]
  - Anxiety [Unknown]
  - Educational problem [Unknown]
  - Dry mouth [Unknown]
  - Hypercholesterolaemia [Unknown]
  - Abdominal pain [Unknown]
  - Social avoidant behaviour [Unknown]
  - Injection site pain [Unknown]
  - Abnormal behaviour [Unknown]
  - Epistaxis [Unknown]
  - Constipation [Unknown]
  - Dystonia [Unknown]
  - Loss of personal independence in daily activities [Unknown]
  - Extrapyramidal disorder [Unknown]
  - Ear haemorrhage [Unknown]
  - Increased appetite [Unknown]
  - Vertigo [Unknown]
  - Sedation [Unknown]
  - Pain [Unknown]
  - Weight decreased [Unknown]
  - Headache [Unknown]

NARRATIVE: CASE EVENT DATE: 20130215
